FAERS Safety Report 4980551-1 (Version None)
Quarter: 2006Q2

REPORT INFORMATION
  Report Type: 
  Country: None (occurrence: None)
  Receive Date: 20060424
  Receipt Date: 20050801
  Transmission Date: 20061013
  Serious: Yes (Hospitalization, Disabling)
  Sender: FDA-Public Use
  Company Number: US-MERCK-0508USA00745

PATIENT
  Age: 43 Year
  Sex: Male
  Weight: 155 kg

DRUGS (9)
  1. LISINOPRIL [Concomitant]
     Route: 065
  2. VIOXX [Suspect]
     Indication: PAIN
     Route: 048
     Dates: start: 20040210, end: 20040212
  3. VICODIN [Concomitant]
     Route: 065
  4. METFORMIN [Concomitant]
     Route: 065
  5. COREG [Concomitant]
     Route: 065
  6. LORAZEPAM [Concomitant]
     Route: 065
  7. SOMA [Concomitant]
     Route: 065
  8. ASPIRIN [Concomitant]
     Route: 065
  9. DOCUSATE CALCIUM [Concomitant]
     Route: 065

REACTIONS (4)
  - CORONARY ARTERY DISEASE [None]
  - LIMB INJURY [None]
  - MYOCARDIAL INFARCTION [None]
  - PAIN [None]
